FAERS Safety Report 17963591 (Version 1)
Quarter: 2020Q2

REPORT INFORMATION
  Report Type: Spontaneous
  Country: DE (occurrence: DE)
  Receive Date: 20200630
  Receipt Date: 20200630
  Transmission Date: 20200714
  Serious: Yes (Life-Threatening, Hospitalization, Other)
  Sender: FDA-Public Use
  Company Number: DE-JNJFOC-20200631863

PATIENT
  Age: 75 Year
  Sex: Male
  Weight: 89 kg

DRUGS (1)
  1. RIVAROXABAN [Suspect]
     Active Substance: RIVAROXABAN
     Indication: ATRIAL FIBRILLATION
     Dosage: 20 MG, QD
     Route: 048
     Dates: start: 2019, end: 20200402

REACTIONS (3)
  - Mallory-Weiss syndrome [Recovered/Resolved]
  - Gastric haemorrhage [Recovered/Resolved]
  - Blood loss anaemia [Recovered/Resolved]

NARRATIVE: CASE EVENT DATE: 20200402
